FAERS Safety Report 11339641 (Version 1)
Quarter: 2015Q3

REPORT INFORMATION
  Report Type: Spontaneous
  Country: US (occurrence: US)
  Receive Date: 20150805
  Receipt Date: 20150805
  Transmission Date: 20151125
  Serious: No
  Sender: FDA-Public Use
  Company Number: US-009507513-1508USA001329

PATIENT
  Age: 18 Year
  Sex: Female
  Weight: 56.69 kg

DRUGS (1)
  1. IMPLANON [Suspect]
     Active Substance: ETONOGESTREL
     Indication: CONTRACEPTION
     Dosage: 1 DF(ROD), EVERY 3 YEAR, LEFT ARM-IMPLANT
     Route: 059
     Dates: start: 20121116

REACTIONS (1)
  - Oligomenorrhoea [Unknown]

NARRATIVE: CASE EVENT DATE: 2015
